FAERS Safety Report 8529662-4 (Version None)
Quarter: 2012Q3

REPORT INFORMATION
  Report Type: 
  Country: None (occurrence: None)
  Receive Date: 20120723
  Receipt Date: 20120717
  Transmission Date: 20120928
  Serious: Yes (Other)
  Sender: FDA-Public Use
  Company Number: US-JNJFOC-20110503816

PATIENT
  Sex: Female

DRUGS (1)
  1. PROPULSID [Suspect]
     Indication: MOBILITY DECREASED
     Route: 065
     Dates: start: 19961104, end: 19990101

REACTIONS (3)
  - GASTROINTESTINAL DISORDER [None]
  - CONSTIPATION [None]
  - ASPERGER'S DISORDER [None]
